FAERS Safety Report 16860781 (Version 3)
Quarter: 2019Q4

REPORT INFORMATION
  Report Type: Report from Study
  Country: PR (occurrence: PR)
  Receive Date: 20190927
  Receipt Date: 20191101
  Transmission Date: 20200122
  Serious: Yes (Hospitalization, Other)
  Sender: FDA-Public Use
  Company Number: PR-JNJFOC-20190934493

PATIENT
  Age: 75 Year
  Sex: Male

DRUGS (12)
  1. IMODIUM AD [Concomitant]
     Active Substance: LOPERAMIDE HYDROCHLORIDE
  2. VITAMIN B12 [Concomitant]
     Active Substance: CYANOCOBALAMIN
  3. IMBRUVICA [Suspect]
     Active Substance: IBRUTINIB
     Indication: MANTLE CELL LYMPHOMA
     Dosage: 420 MG, QD
     Route: 048
     Dates: start: 20190827, end: 20190928
  4. SIMVASTATIN. [Concomitant]
     Active Substance: SIMVASTATIN
  5. METOPROLOL TARTRATE. [Concomitant]
     Active Substance: METOPROLOL TARTRATE
  6. ELIGARD [Concomitant]
     Active Substance: LEUPROLIDE ACETATE
  7. FLOMAX [Concomitant]
     Active Substance: TAMSULOSIN HYDROCHLORIDE
  8. VITAMIN D3 [Concomitant]
     Active Substance: CHOLECALCIFEROL
  9. FOLIC ACID UNSPECIFIED [Concomitant]
  10. RAMIPRIL. [Concomitant]
     Active Substance: RAMIPRIL
  11. VITAMIN C [Concomitant]
     Active Substance: ASCORBIC ACID
  12. VITAMIN E                          /00110501/ [Concomitant]
     Active Substance: TOCOPHEROL

REACTIONS (2)
  - Haemoglobin decreased [Recovered/Resolved]
  - Urinary bladder haemorrhage [Unknown]

NARRATIVE: CASE EVENT DATE: 20190919
